FAERS Safety Report 8958627 (Version 1)
Quarter: 2012Q4

REPORT INFORMATION
  Report Type: Spontaneous
  Country: US (occurrence: None)
  Receive Date: 20121203
  Receipt Date: 20121203
  Transmission Date: 20130627
  Serious: Yes (Life-Threatening, Hospitalization)
  Sender: FDA-Public Use
  Company Number: 2012-05319

PATIENT
  Age: 22 Year
  Sex: Female

DRUGS (2)
  1. ACETAMINOPHEN [Suspect]
     Route: 048
  2. TYLENOL W/CODEINE NO. 3 [Suspect]
     Dosage: 6-8 tablets /day for 10-14 days

REACTIONS (17)
  - Acute hepatic failure [None]
  - Stillbirth [None]
  - Accidental poisoning [None]
  - Maternal exposure during pregnancy [None]
  - Liver transplant [None]
  - Toxicity to various agents [None]
  - Chest pain [None]
  - Hepatotoxicity [None]
  - Metabolic acidosis [None]
  - Overdose [None]
  - Tachypnoea [None]
  - Somnolence [None]
  - Hepatic encephalopathy [None]
  - Coagulopathy [None]
  - Mental status changes [None]
  - Anastomotic haemorrhage [None]
  - Abortion induced [None]
